FAERS Safety Report 5259214-3 (Version None)
Quarter: 2007Q1

REPORT INFORMATION
  Report Type: 
  Country: None (occurrence: None)
  Receive Date: 20070308
  Receipt Date: 20070227
  Transmission Date: 20070707
  Serious: Yes (Life-Threatening, Hospitalization, Other)
  Sender: FDA-Public Use
  Company Number: JP-PFIZER INC-2007013811

PATIENT
  Sex: Male
  Weight: 70 kg

DRUGS (7)
  1. VIAGRA [Suspect]
     Route: 048
     Dates: start: 20070212, end: 20070212
  2. LOSARTAN POTASSIUM AND HYDROCHLOROTHIAZIDE [Concomitant]
     Route: 048
  3. URSODIOL [Concomitant]
     Route: 048
  4. TOLMYNAL [Concomitant]
     Route: 048
  5. RESPLEN [Concomitant]
     Route: 048
  6. MUCOBULIN [Concomitant]
     Route: 048
  7. AZULENE DERIVATIVES [Concomitant]
     Route: 048

REACTIONS (6)
  - APHASIA [None]
  - CONVULSION [None]
  - DEPRESSED LEVEL OF CONSCIOUSNESS [None]
  - METABOLIC ACIDOSIS [None]
  - RESPIRATORY DEPRESSION [None]
  - STUPOR [None]
